FAERS Safety Report 11718158 (Version 4)
Quarter: 2016Q1

REPORT INFORMATION
  Report Type: Report from Study
  Country: FR (occurrence: FR)
  Receive Date: 20151110
  Receipt Date: 20160105
  Transmission Date: 20160525
  Serious: Yes (Hospitalization, Disabling, Other)
  Sender: FDA-Public Use
  Company Number: FR-SHIRE-FR201513794

PATIENT
  Sex: Male
  Weight: 34.2 kg

DRUGS (4)
  1. IDURSULFASE [Suspect]
     Active Substance: IDURSULFASE
     Indication: MUCOPOLYSACCHARIDOSIS II
     Dosage: 0.5 MG/KG, 1X/2WKS
     Route: 041
     Dates: start: 20080513
  2. IDURSULFASE [Suspect]
     Active Substance: IDURSULFASE
     Dosage: 0.6 MG/KG, 1X/2WKS
     Route: 041
     Dates: start: 20110418
  3. HALDOL [Concomitant]
     Active Substance: HALOPERIDOL
     Indication: ABNORMAL BEHAVIOUR
     Dosage: UNK, UNKNOWN( X21 (J) DAYS)
     Route: 065
  4. IDURSULFASE [Suspect]
     Active Substance: IDURSULFASE
     Dosage: UNK UNK, UNKNOWN
     Route: 041
     Dates: start: 20140922

REACTIONS (3)
  - Abasia [Not Recovered/Not Resolved]
  - Eschar [Unknown]
  - Hydrocephalus [Not Recovered/Not Resolved]
